FAERS Safety Report 5730540-4 (Version None)
Quarter: 2008Q2

REPORT INFORMATION
  Report Type: 
  Country: None (occurrence: None)
  Receive Date: 20080507
  Receipt Date: 20080429
  Transmission Date: 20081010
  Serious: Yes (Hospitalization)
  Sender: FDA-Public Use
  Company Number: US-MERCK-0803USA02812

PATIENT
  Age: 65 Year
  Sex: Female

DRUGS (2)
  1. ZOCOR [Suspect]
     Indication: BLOOD CHOLESTEROL INCREASED
     Route: 048
     Dates: start: 20051013, end: 20051001
  2. HALDOL [Concomitant]
     Route: 065

REACTIONS (3)
  - CONVULSION [None]
  - INSOMNIA [None]
  - LOSS OF CONSCIOUSNESS [None]
